FAERS Safety Report 11660717 (Version 1)
Quarter: 2015Q4

REPORT INFORMATION
  Report Type: Spontaneous
  Country: US (occurrence: US)
  Receive Date: 20151026
  Receipt Date: 20151026
  Transmission Date: 20160304
  Serious: No
  Sender: FDA-Public Use
  Company Number: US-MEDA-2011070155

PATIENT
  Age: 70 Year
  Sex: Male
  Weight: 83 kg

DRUGS (3)
  1. AMBIEN [Concomitant]
     Active Substance: ZOLPIDEM TARTRATE
     Indication: INITIAL INSOMNIA
     Route: 048
  2. LORAZEPAM. [Concomitant]
     Active Substance: LORAZEPAM
     Route: 048
  3. ASTEPRO [Suspect]
     Active Substance: AZELASTINE HYDROCHLORIDE
     Indication: RHINITIS ALLERGIC

REACTIONS (1)
  - Drug ineffective [Not Recovered/Not Resolved]
